FAERS Safety Report 24066765 (Version 4)
Quarter: 2024Q4

REPORT INFORMATION
  Report Type: Spontaneous
  Country: US (occurrence: US)
  Receive Date: 20240709
  Receipt Date: 20241001
  Transmission Date: 20250114
  Serious: Yes (Death, Life-Threatening, Hospitalization, Other)
  Sender: IOVANCE BIOTHERAPEUTICS
  Company Number: US-IOVANCE BIOTHERAPEUTICS INC.-IOV2024000012

PATIENT

DRUGS (4)
  1. ALDESLEUKIN [Suspect]
     Active Substance: ALDESLEUKIN
     Indication: Product used for unknown indication
     Dosage: 6 DOSES
     Route: 065
     Dates: start: 202405
  2. LIFILEUCEL [Suspect]
     Active Substance: LIFILEUCEL
     Indication: Malignant melanoma
     Dosage: 22 BILLION CELLS, SINGLE
     Route: 042
     Dates: start: 20240521, end: 20240521
  3. CYCLOPHOSPHAMIDE [Concomitant]
     Active Substance: CYCLOPHOSPHAMIDE
     Indication: Product used for unknown indication
     Dosage: UNK
     Route: 065
     Dates: start: 20240521
  4. FLUDARABINE [Concomitant]
     Active Substance: FLUDARABINE PHOSPHATE
     Indication: Product used for unknown indication
     Dosage: UNK
     Route: 065
     Dates: start: 20240521

REACTIONS (9)
  - Multiple organ dysfunction syndrome [Fatal]
  - Septic shock [Unknown]
  - Cytopenia [Recovered/Resolved]
  - Flank pain [Unknown]
  - White blood cell count decreased [Unknown]
  - Hypotension [Unknown]
  - Asthenia [Unknown]
  - Pyrexia [Unknown]
  - Malaise [Unknown]

NARRATIVE: CASE EVENT DATE: 20240101
